FAERS Safety Report 17718352 (Version 1)
Quarter: 2020Q2

REPORT INFORMATION
  Report Type: Spontaneous
  Country: CL (occurrence: CL)
  Receive Date: 20200428
  Receipt Date: 20200428
  Transmission Date: 20200714
  Serious: Yes (Other)
  Sender: FDA-Public Use
  Company Number: CL-FRESENIUS KABI-FK202004214

PATIENT
  Age: 15 Year
  Sex: Male

DRUGS (6)
  1. VINCRISTINE SULFATE. [Suspect]
     Active Substance: VINCRISTINE SULFATE
     Indication: IMMUNE THROMBOCYTOPENIA
     Dosage: UNKNOWN
     Route: 065
  2. METHYLPREDNISOLONE (MANUFACTURER UNKNOWN) [Suspect]
     Active Substance: METHYLPREDNISOLONE
     Indication: IMMUNE THROMBOCYTOPENIA
     Dosage: 4 PULSES
     Route: 065
  3. IMMUNOGLOBULIN HUMAN NORMAL [Suspect]
     Active Substance: HUMAN IMMUNOGLOBULIN G
     Indication: IMMUNE THROMBOCYTOPENIA
     Dosage: UNKNOWN
     Route: 042
  4. RITUXIMAB. [Suspect]
     Active Substance: RITUXIMAB
     Indication: IMMUNE THROMBOCYTOPENIA
     Dosage: UNKNOWN
     Route: 065
  5. ELTROMBOPAG [Suspect]
     Active Substance: ELTROMBOPAG
     Indication: IMMUNE THROMBOCYTOPENIA
     Dosage: UNKNOWN
     Route: 065
  6. MYCOPHENOLATE MOFETIL. [Suspect]
     Active Substance: MYCOPHENOLATE MOFETIL
     Indication: IMMUNE THROMBOCYTOPENIA
     Dosage: UNKNOWN
     Route: 065

REACTIONS (8)
  - BK virus infection [Recovered/Resolved]
  - Sinusitis [Recovered/Resolved]
  - Staphylococcal infection [Recovered/Resolved]
  - Cytomegalovirus viraemia [Recovered/Resolved]
  - Candida infection [Recovered/Resolved]
  - Epstein-Barr viraemia [Recovered/Resolved]
  - Pseudomonas infection [Recovered/Resolved]
  - Pneumococcal infection [Recovered/Resolved]
